FAERS Safety Report 24351773 (Version 5)
Quarter: 2024Q4

REPORT INFORMATION
  Report Type: Spontaneous
  Country: US (occurrence: US)
  Receive Date: 20240923
  Receipt Date: 20241204
  Transmission Date: 20250115
  Serious: No
  Sender: PFIZER
  Company Number: US-PFIZER INC-202400258405

PATIENT
  Age: 14 Year
  Sex: Male

DRUGS (1)
  1. GENOTROPIN [Suspect]
     Active Substance: SOMATROPIN
     Dosage: 2.4 MG

REACTIONS (4)
  - Drug dose omission by device [Unknown]
  - Device use issue [Unknown]
  - Device information output issue [Unknown]
  - Device power source issue [Unknown]

NARRATIVE: CASE EVENT DATE: 20240916
